FAERS Safety Report 7533515-8 (Version None)
Quarter: 2011Q2

REPORT INFORMATION
  Report Type: 
  Country: None (occurrence: None)
  Receive Date: 20110608
  Receipt Date: 20060214
  Transmission Date: 20111010
  Serious: Yes (Other)
  Sender: FDA-Public Use
  Company Number: PHFR2006GB00681

PATIENT
  Sex: Female

DRUGS (6)
  1. CLOZAPINE [Suspect]
     Indication: SCHIZOPHRENIA
     Dosage: 500MG DAILY
     Route: 048
     Dates: start: 20030428
  2. CITALOPRAM HYDROBROMIDE [Concomitant]
     Dosage: 30MG/DAY
     Route: 048
  3. LAMOTRIGINE [Concomitant]
     Dosage: 150MG/DAY
     Route: 048
  4. OMEPRAZOLE [Concomitant]
     Dosage: 20MG/DAY
     Route: 048
  5. HYOSCINE [Concomitant]
     Dosage: 300UG/DAY
     Route: 048
  6. METHADONE HCL [Concomitant]
     Dosage: 40ML/DAY
     Route: 048

REACTIONS (4)
  - ELECTROCARDIOGRAM T WAVE ABNORMAL [None]
  - ISCHAEMIA [None]
  - ELECTROCARDIOGRAM QT PROLONGED [None]
  - ELECTROCARDIOGRAM ABNORMAL [None]
